FAERS Safety Report 25904266 (Version 1)
Quarter: 2025Q4

REPORT INFORMATION
  Report Type: Spontaneous
  Country: US (occurrence: US)
  Receive Date: 20251010
  Receipt Date: 20251010
  Transmission Date: 20260118
  Serious: No
  Sender: SPROUT PHARMACEUTICALS
  Company Number: US-Sprout Pharmaceuticals, Inc.-2024SP000297

PATIENT

DRUGS (2)
  1. ADDYI [Suspect]
     Active Substance: FLIBANSERIN
     Indication: Product used for unknown indication
     Dosage: 100 MILLIGRAM
     Route: 048
  2. ADDYI [Suspect]
     Active Substance: FLIBANSERIN
     Dosage: 50 MILLIGRAM
     Route: 048

REACTIONS (7)
  - Adverse drug reaction [Unknown]
  - Asthenia [Unknown]
  - Malaise [Unknown]
  - Intentional product use issue [Unknown]
  - Rash [Not Recovered/Not Resolved]
  - Somnolence [Unknown]
  - Drug ineffective [Unknown]
